FAERS Safety Report 19818958 (Version 1)
Quarter: 2021Q3

REPORT INFORMATION
  Report Type: Other
  Country: US (occurrence: US)
  Receive Date: 20210912
  Receipt Date: 20210912
  Transmission Date: 20211014
  Serious: No
  Sender: FDA-Public Use
  Company Number: US-NEUROCRINE BIOSCIENCES INC.-2021NBI04960

PATIENT

DRUGS (12)
  1. ABILIFY [Concomitant]
     Active Substance: ARIPIPRAZOLE
     Dosage: UNK
  2. PROTONIX [OMEPRAZOLE] [Concomitant]
     Active Substance: OMEPRAZOLE
     Dosage: UNK
  3. VITAMIN D NOS [Concomitant]
     Active Substance: VITAMIN D NOS
     Dosage: UNK
  4. INGREZZA [Suspect]
     Active Substance: VALBENAZINE
     Indication: TARDIVE DYSKINESIA
     Dosage: 80 MILLIGRAM, QD
     Route: 048
     Dates: start: 2019
  5. SYNTHROID [Concomitant]
     Active Substance: LEVOTHYROXINE SODIUM
     Dosage: UNK
  6. LOSARTAN. [Concomitant]
     Active Substance: LOSARTAN
     Dosage: UNK
  7. RANITIDINE. [Concomitant]
     Active Substance: RANITIDINE
     Dosage: UNK
  8. ATORVASTATIN [Concomitant]
     Active Substance: ATORVASTATIN
     Dosage: UNK
  9. FUROSEMIDE. [Concomitant]
     Active Substance: FUROSEMIDE
     Dosage: UNK
  10. LAMOTRIGINE. [Concomitant]
     Active Substance: LAMOTRIGINE
     Dosage: UNK
  11. MECLIZINE HCL [Concomitant]
     Active Substance: MECLIZINE HYDROCHLORIDE
     Dosage: UNK
  12. VENLAFAXINE [Concomitant]
     Active Substance: VENLAFAXINE HYDROCHLORIDE
     Dosage: UNK

REACTIONS (1)
  - Tardive dyskinesia [Not Recovered/Not Resolved]
